FAERS Safety Report 8344275-5 (Version None)
Quarter: 2012Q2

REPORT INFORMATION
  Report Type: 
  Country: None (occurrence: None)
  Receive Date: 20120508
  Receipt Date: 20120503
  Transmission Date: 20120825
  Serious: Yes (Hospitalization, Other)
  Sender: FDA-Public Use
  Company Number: AU-B.I. PHARMACEUTICALS,INC./RIDGEFIELD-2012-AU-00840AU

PATIENT
  Age: 64 Year
  Sex: Male

DRUGS (7)
  1. VENTOLIN [Concomitant]
  2. PRADAXA [Suspect]
     Indication: CEREBROVASCULAR ACCIDENT PROPHYLAXIS
     Dosage: 300 MG
     Dates: start: 20110912, end: 20120412
  3. FLUTICASONE PROPIONATE/SALMETEROL [Concomitant]
  4. NEXIUM [Concomitant]
  5. MICARDIS [Concomitant]
  6. LIPITOR [Concomitant]
  7. SPIRIVA [Concomitant]

REACTIONS (1)
  - EMBOLIC STROKE [None]
